FAERS Safety Report 5120889-0 (Version None)
Quarter: 2006Q4

REPORT INFORMATION
  Report Type: 
  Country: None (occurrence: None)
  Receive Date: 20061005
  Receipt Date: 20060920
  Transmission Date: 20070319
  Serious: Yes (Other)
  Sender: FDA-Public Use
  Company Number: PHNR2006AU01290

PATIENT
  Age: 41 Year
  Sex: Male

DRUGS (2)
  1. ANTIDIABETICS [Concomitant]
  2. GLEEVEC [Suspect]
     Indication: CHRONIC MYELOID LEUKAEMIA
     Dosage: 400MG
     Dates: start: 20020101

REACTIONS (2)
  - DIABETIC NEUROPATHY [None]
  - IIIRD NERVE PARALYSIS [None]
